FAERS Safety Report 9408972 (Version 1)
Quarter: 2013Q3

REPORT INFORMATION
  Report Type: Spontaneous
  Country: US (occurrence: None)
  Receive Date: 20130717
  Receipt Date: 20130717
  Transmission Date: 20140515
  Serious: Yes (Life-Threatening)
  Sender: FDA-Public Use
  Company Number: None

PATIENT
  Age: 77 Year
  Sex: Male
  Weight: 113.8 kg

DRUGS (1)
  1. RIATA ST LEAD [Suspect]

REACTIONS (3)
  - Device lead damage [None]
  - Device pacing issue [None]
  - Device lead issue [None]
